FAERS Safety Report 5011254-5 (Version None)
Quarter: 2006Q2

REPORT INFORMATION
  Report Type: 
  Country: None (occurrence: None)
  Receive Date: 20060523
  Receipt Date: 20060515
  Transmission Date: 20061013
  Serious: Yes (Hospitalization, Other)
  Sender: FDA-Public Use
  Company Number: MEDI-0004308

PATIENT
  Age: 39 Year
  Sex: Female
  Weight: 74.8435 kg

DRUGS (4)
  1. ETHYOL [Suspect]
     Indication: CHEMOTHERAPY
     Dosage: SUBCUTANEOUS
     Route: 058
     Dates: start: 20060313, end: 20060328
  2. ETHYOL [Suspect]
     Indication: RADIOTHERAPY
     Dosage: SUBCUTANEOUS
     Route: 058
     Dates: start: 20060313, end: 20060328
  3. CISPLATIN [Concomitant]
  4. RADIATION THERAPY [Concomitant]

REACTIONS (13)
  - ABDOMINAL PAIN [None]
  - ANXIETY [None]
  - BLOOD CREATININE INCREASED [None]
  - CATHETER SEPSIS [None]
  - CATHETER SITE PAIN [None]
  - DEHYDRATION [None]
  - DIARRHOEA [None]
  - HEPATIC ENZYME INCREASED [None]
  - NAUSEA [None]
  - PYREXIA [None]
  - SUPRAVENTRICULAR TACHYCARDIA [None]
  - THROMBOSIS IN DEVICE [None]
  - VOMITING [None]
